FAERS Safety Report 25311896 (Version 1)
Quarter: 2025Q2

REPORT INFORMATION
  Report Type: Spontaneous
  Country: US (occurrence: None)
  Receive Date: 20250514
  Receipt Date: 20250514
  Transmission Date: 20250717
  Serious: Yes (Hospitalization)
  Sender: FDA-CTU
  Company Number: None

PATIENT
  Sex: Female

DRUGS (11)
  1. LENALIDOMIDE [Suspect]
     Active Substance: LENALIDOMIDE
     Indication: Plasma cell myeloma
     Dosage: OTHER FREQUENCY : DAILY FOR 14 DAYS THEN 7 DAYS OFF;?
     Route: 048
     Dates: start: 20241004
  2. ATORVASTATIN [Concomitant]
     Active Substance: ATORVASTATIN
  3. CEPHALEXIN [Concomitant]
     Active Substance: CEPHALEXIN
  4. DOXYCYCLINE HYCLATE [Concomitant]
     Active Substance: DOXYCYCLINE HYCLATE
  5. EPINEPHRINE [Concomitant]
     Active Substance: EPINEPHRINE
  6. FERROUS SULFATE [Concomitant]
     Active Substance: FERROUS SULFATE
  7. JANUVIA [Concomitant]
     Active Substance: SITAGLIPTIN PHOSPHATE
  8. KETOCONAZOLE SHA 2% [Concomitant]
  9. LUMIGAN SOL 0.01% OP [Concomitant]
  10. CALCIUM CHLORIDE\MAGNESIUM CHLORIDE [Concomitant]
     Active Substance: CALCIUM CHLORIDE\MAGNESIUM CHLORIDE
  11. NYAMYC POW [Concomitant]

REACTIONS (1)
  - Therapy interrupted [None]
